FAERS Safety Report 24115893 (Version 1)
Quarter: 2024Q3

REPORT INFORMATION
  Report Type: Spontaneous
  Country: CN (occurrence: CN)
  Receive Date: 20240721
  Receipt Date: 20240721
  Transmission Date: 20241016
  Serious: Yes (Other)
  Sender: BEIGENE
  Company Number: CN-BEIGENE-BGN-2024-010910

PATIENT

DRUGS (2)
  1. TISLELIZUMAB [Suspect]
     Active Substance: TISLELIZUMAB
     Indication: Laryngeal cancer stage 0
     Dosage: 200 MILLIGRAM, Q3WK
     Route: 041
     Dates: start: 20240522
  2. CETUXIMAB [Concomitant]
     Active Substance: CETUXIMAB
     Indication: Laryngeal cancer stage 0
     Dosage: 400 MILLIGRAM, QWK
     Route: 041
     Dates: start: 20240522

REACTIONS (1)
  - Immune-mediated hepatic disorder [Recovering/Resolving]

NARRATIVE: CASE EVENT DATE: 20240616
